FAERS Safety Report 7006009-6 (Version None)
Quarter: 2010Q3

REPORT INFORMATION
  Report Type: 
  Country: None (occurrence: None)
  Receive Date: 20100921
  Receipt Date: 20100909
  Transmission Date: 20110219
  Serious: Yes (Hospitalization)
  Sender: FDA-Public Use
  Company Number: US-GENZYME-POMP-1001107

PATIENT
  Sex: Female

DRUGS (1)
  1. MYOZYME [Suspect]
     Indication: GLYCOGEN STORAGE DISEASE TYPE II
     Dosage: UNK

REACTIONS (9)
  - ASPIRATION [None]
  - CARDIAC DISORDER [None]
  - DEVICE RELATED INFECTION [None]
  - EAR INFECTION [None]
  - FAILURE TO THRIVE [None]
  - GASTROOESOPHAGEAL REFLUX DISEASE [None]
  - HYPOTENSION [None]
  - RENAL IMPAIRMENT [None]
  - RESPIRATORY FAILURE [None]
